FAERS Safety Report 17316645 (Version 4)
Quarter: 2020Q1

REPORT INFORMATION
  Report Type: Spontaneous
  Country: IN (occurrence: IN)
  Receive Date: 20200124
  Receipt Date: 20200225
  Transmission Date: 20200409
  Serious: Yes (Other)
  Sender: FDA-Public Use
  Company Number: IN-PFIZER INC-2019465757

PATIENT
  Age: 76 Year
  Sex: Male

DRUGS (1)
  1. SUTENT [Suspect]
     Active Substance: SUNITINIB MALATE
     Indication: METASTATIC RENAL CELL CARCINOMA
     Dosage: 50 MG, 1X/DAY
     Route: 048
     Dates: start: 20180426, end: 202001

REACTIONS (7)
  - Tongue blistering [Unknown]
  - Nervous system disorder [Unknown]
  - Neoplasm progression [Unknown]
  - Throat irritation [Unknown]
  - Thyroid disorder [Unknown]
  - Pulmonary oedema [Unknown]
  - Hyperchlorhydria [Unknown]
